FAERS Safety Report 4750376-0 (Version None)
Quarter: 2005Q3

REPORT INFORMATION
  Report Type: 
  Country: None (occurrence: None)
  Receive Date: 20050818
  Receipt Date: 20050811
  Transmission Date: 20060218
  Serious: Yes (Other)
  Sender: FDA-Public Use
  Company Number: 2005-02955

PATIENT
  Age: 43 Year
  Sex: Female

DRUGS (2)
  1. METHYLPREDNISOLONE [Suspect]
     Indication: ENDOCRINE OPHTHALMOPATHY
     Dosage: 4.7 G, CUMULATIVE, INTRAVENOUS
     Route: 042
     Dates: start: 20030301, end: 20030301
  2. LEVOTHYROXINE SODIUM [Concomitant]

REACTIONS (1)
  - AUTOIMMUNE HEPATITIS [None]
